FAERS Safety Report 9225211 (Version 1)
Quarter: 2013Q2

REPORT INFORMATION
  Report Type: Spontaneous
  Country: US (occurrence: US)
  Receive Date: 20130411
  Receipt Date: 20130411
  Transmission Date: 20140414
  Serious: Yes (Hospitalization, Other)
  Sender: FDA-Public Use
  Company Number: US-ABBOTT-13P-163-1071167-00

PATIENT
  Age: 48 Year
  Sex: Female
  Weight: 39.04 kg

DRUGS (2)
  1. HUMIRA [Suspect]
     Indication: CROHN^S DISEASE
     Dates: start: 2008
  2. ALCOHOLIC [Suspect]
     Indication: ALCOHOL ABUSE

REACTIONS (9)
  - Thrombosis in device [Recovered/Resolved]
  - Pulmonary embolism [Recovered/Resolved]
  - Pancreatic pseudocyst [Recovered/Resolved]
  - Aphagia [Recovered/Resolved]
  - Alcohol abuse [Recovered/Resolved]
  - Pancreatitis [Recovered/Resolved]
  - Weight decreased [Recovered/Resolved]
  - Injection site mass [Not Recovered/Not Resolved]
  - Injection site haemorrhage [Not Recovered/Not Resolved]
